FAERS Safety Report 5701903-8 (Version None)
Quarter: 2008Q2

REPORT INFORMATION
  Report Type: 
  Country: None (occurrence: None)
  Receive Date: 20080411
  Receipt Date: 20080403
  Transmission Date: 20081010
  Serious: Yes (Other)
  Sender: FDA-Public Use
  Company Number: PHBS2007JP21533

PATIENT
  Age: 63 Year
  Sex: Female

DRUGS (1)
  1. ZOMETA [Suspect]
     Indication: METASTASES TO BONE
     Dosage: 4 MG, QD
     Route: 042
     Dates: start: 20070101

REACTIONS (6)
  - BONE DISORDER [None]
  - OSTEONECROSIS [None]
  - PAIN [None]
  - PERIODONTITIS [None]
  - TOOTH EXTRACTION [None]
  - TOOTHACHE [None]
